FAERS Safety Report 4949247-6 (Version None)
Quarter: 2006Q1

REPORT INFORMATION
  Report Type: 
  Country: None (occurrence: None)
  Receive Date: 20060321
  Receipt Date: 20050421
  Transmission Date: 20060701
  Serious: Yes (Hospitalization, Disabling)
  Sender: FDA-Public Use
  Company Number: US-MERCK-0504USA04243

PATIENT
  Age: 56 Year
  Sex: Male
  Weight: 86 kg

DRUGS (2)
  1. VIOXX [Suspect]
     Indication: ARTHRITIS
     Route: 048
     Dates: start: 20020801, end: 20040101
  2. LIPITOR [Concomitant]
     Route: 065

REACTIONS (20)
  - ANGINA PECTORIS [None]
  - ANGINA UNSTABLE [None]
  - ANXIETY [None]
  - ARTERIOSCLEROSIS CORONARY ARTERY [None]
  - CARDIAC DISORDER [None]
  - CORONARY ARTERY DISEASE [None]
  - DEPRESSION [None]
  - DYSPNOEA [None]
  - DYSPNOEA EXERTIONAL [None]
  - HYPERLIPIDAEMIA [None]
  - HYPERTENSION [None]
  - HYPERTHYROIDISM [None]
  - HYPOKINESIA [None]
  - INJURY [None]
  - MYOCARDIAL ISCHAEMIA [None]
  - NEUROMA [None]
  - RENAL CYST [None]
  - ROSACEA [None]
  - TOBACCO WITHDRAWAL SYMPTOMS [None]
  - VENTRICULAR EXTRASYSTOLES [None]
